FAERS Safety Report 7165244-7 (Version None)
Quarter: 2010Q4

REPORT INFORMATION
  Report Type: 
  Country: None (occurrence: None)
  Receive Date: 20101215
  Receipt Date: 20091218
  Transmission Date: 20110411
  Serious: No
  Sender: FDA-Public Use
  Company Number: US-AMGEN-KDL381337

PATIENT

DRUGS (6)
  1. ENBREL [Suspect]
     Indication: PSORIATIC ARTHROPATHY
     Dosage: 50 MG, QWK
     Route: 058
     Dates: start: 20050501
  2. ENBREL [Suspect]
     Indication: PSORIASIS
  3. FLAX SEED OIL [Concomitant]
  4. ASPIRIN [Concomitant]
  5. DULOXETINE HYDROCHLORIDE [Concomitant]
  6. FISH OIL [Concomitant]

REACTIONS (4)
  - EPISTAXIS [None]
  - INFLUENZA [None]
  - PSORIASIS [None]
  - PSORIATIC ARTHROPATHY [None]
